FAERS Safety Report 13996331 (Version 2)
Quarter: 2017Q3

REPORT INFORMATION
  Report Type: Spontaneous
  Country: JP (occurrence: JP)
  Receive Date: 20170921
  Receipt Date: 20170929
  Transmission Date: 20171128
  Serious: Yes (Hospitalization)
  Sender: FDA-Public Use
  Company Number: JP-ASTRAZENECA-2017SE94986

PATIENT
  Age: 31521 Day
  Sex: Female
  Weight: 32 kg

DRUGS (1)
  1. TAGRISSO [Suspect]
     Active Substance: OSIMERTINIB
     Indication: NON-SMALL CELL LUNG CANCER
     Route: 048
     Dates: start: 20170819, end: 20170901

REACTIONS (5)
  - Cardiac failure congestive [Recovering/Resolving]
  - Aortic valve incompetence [Unknown]
  - Mitral valve incompetence [Unknown]
  - Sinus arrhythmia [Unknown]
  - Lung disorder [Recovering/Resolving]

NARRATIVE: CASE EVENT DATE: 20170901
